FAERS Safety Report 10078215 (Version 2)
Quarter: 2014Q2

REPORT INFORMATION
  Report Type: Spontaneous
  Country: TW (occurrence: TW)
  Receive Date: 20140415
  Receipt Date: 20140429
  Transmission Date: 20141212
  Serious: Yes (Other)
  Sender: FDA-Public Use
  Company Number: TW-ROCHE-1375456

PATIENT
  Age: 54 Year
  Sex: Male

DRUGS (1)
  1. VALCYTE [Suspect]
     Indication: CYTOMEGALOVIRUS INFECTION
     Dosage: (EVERY OTHER DAY)
     Route: 048
     Dates: start: 201403, end: 201403

REACTIONS (2)
  - Alanine aminotransferase increased [Recovering/Resolving]
  - White blood cell count decreased [Unknown]
